FAERS Safety Report 15140071 (Version 1)
Quarter: 2018Q3

REPORT INFORMATION
  Report Type: Spontaneous
  Country: TR (occurrence: TR)
  Receive Date: 20180713
  Receipt Date: 20180713
  Transmission Date: 20181010
  Serious: Yes (Other)
  Sender: FDA-Public Use
  Company Number: TR-TEVA-2018-TR-925864

PATIENT
  Age: 53 Year
  Sex: Female

DRUGS (1)
  1. TAMOXIFEN?TEVA 10 MG TABLET [Suspect]
     Active Substance: TAMOXIFEN
     Indication: BREAST CANCER FEMALE
     Dosage: 20 MILLIGRAM DAILY;
     Route: 048

REACTIONS (2)
  - Hepatic cyst [Not Recovered/Not Resolved]
  - Disease progression [None]
